FAERS Safety Report 11135867 (Version 1)
Quarter: 2015Q2

REPORT INFORMATION
  Report Type: Spontaneous
  Country: US (occurrence: US)
  Receive Date: 20150526
  Receipt Date: 20150526
  Transmission Date: 20150821
  Serious: No
  Sender: FDA-Public Use
  Company Number: US-MALLINCKRODT-T201501903

PATIENT
  Age: 25 Year
  Sex: Male
  Weight: 65 kg

DRUGS (2)
  1. H.P. ACTHAR [Suspect]
     Active Substance: CORTICOTROPIN
     Indication: MULTIPLE SCLEROSIS
     Dosage: 80 U/DAY X 5 DAYS
     Route: 058
     Dates: start: 20150330
  2. DYAZIDE [Concomitant]
     Active Substance: HYDROCHLOROTHIAZIDE\TRIAMTERENE
     Dosage: 1 CAPSULE QD

REACTIONS (1)
  - Dry throat [Recovered/Resolved]

NARRATIVE: CASE EVENT DATE: 20150330
